FAERS Safety Report 23873183 (Version 1)
Quarter: 2024Q2

REPORT INFORMATION
  Report Type: Spontaneous
  Country: US (occurrence: None)
  Receive Date: 20240517
  Receipt Date: 20240517
  Transmission Date: 20240716
  Serious: Yes (Other)
  Sender: FDA-Public Use
  Company Number: None

PATIENT
  Age: 81 Year
  Sex: Male
  Weight: 83.25 kg

DRUGS (3)
  1. TENECTEPLASE [Suspect]
     Active Substance: TENECTEPLASE
     Indication: Cerebrovascular accident
     Dosage: 21 MG ONCE INTRAVENOUS?
     Route: 042
     Dates: start: 20240514, end: 20240514
  2. iopamidol 76% [Concomitant]
     Dates: start: 20240514, end: 20240514
  3. SODIUM CHLORIDE [Concomitant]
     Active Substance: SODIUM CHLORIDE
     Dates: start: 20240514

REACTIONS (1)
  - Angioedema [None]

NARRATIVE: CASE EVENT DATE: 20240514
